FAERS Safety Report 10647468 (Version 4)
Quarter: 2016Q2

REPORT INFORMATION
  Report Type: Spontaneous
  Country: US (occurrence: US)
  Receive Date: 20141211
  Receipt Date: 20160603
  Transmission Date: 20160815
  Serious: Yes (Hospitalization, Other)
  Sender: FDA-Public Use
  Company Number: US-GLAXOSMITHKLINE-US2014GSK026378

PATIENT
  Age: 69 Year
  Sex: Female

DRUGS (11)
  1. ADVAIR DISKUS [Suspect]
     Active Substance: FLUTICASONE PROPIONATE\SALMETEROL XINAFOATE
     Indication: CHRONIC OBSTRUCTIVE PULMONARY DISEASE
     Dosage: 250/50 MCG 1 PUFF(S), BID
     Route: 055
     Dates: start: 2012
  2. CALCIUM [Concomitant]
     Active Substance: CALCIUM
  3. FLAXSEED [Concomitant]
     Active Substance: FLAX SEED
  4. TRAMADOL. [Concomitant]
     Active Substance: TRAMADOL
  5. OXYGEN. [Concomitant]
     Active Substance: OXYGEN
  6. VENTOLIN HFA [Suspect]
     Active Substance: ALBUTEROL SULFATE
     Indication: CHRONIC OBSTRUCTIVE PULMONARY DISEASE
     Dosage: 2 PUFF(S), TID
     Route: 055
     Dates: start: 2012
  7. VENTOLIN HFA [Suspect]
     Active Substance: ALBUTEROL SULFATE
     Dosage: 2 PUFF(S), TID
  8. ACETAMINOPHEN. [Concomitant]
     Active Substance: ACETAMINOPHEN
  9. ASPIRIN (BABY) [Concomitant]
     Active Substance: ASPIRIN
  10. VENTOLIN HFA [Suspect]
     Active Substance: ALBUTEROL SULFATE
     Dosage: 2 PUFF(S), TID
  11. VENTOLIN HFA [Suspect]
     Active Substance: ALBUTEROL SULFATE
     Dosage: 2 PUFF(S), QID
     Route: 055

REACTIONS (11)
  - Overdose [Unknown]
  - H1N1 influenza [Recovered/Resolved]
  - Treatment noncompliance [Unknown]
  - Dyspnoea [Recovered/Resolved]
  - Pneumonia [Recovered/Resolved]
  - Tremor [Recovered/Resolved]
  - Oxygen supplementation [Unknown]
  - Back pain [Not Recovered/Not Resolved]
  - Bronchitis [Unknown]
  - Drug dose omission [Unknown]
  - Asthenia [Recovering/Resolving]

NARRATIVE: CASE EVENT DATE: 201512
